FAERS Safety Report 23063850 (Version 1)
Quarter: 2023Q4

REPORT INFORMATION
  Report Type: Spontaneous
  Country: CA (occurrence: None)
  Receive Date: 20231013
  Receipt Date: 20231013
  Transmission Date: 20240110
  Serious: Yes (Disabling)
  Sender: FDA-Public Use
  Company Number: None

PATIENT
  Age: 52 Year
  Sex: Female
  Weight: 76.5 kg

DRUGS (6)
  1. AMOXICILLIN [Suspect]
     Active Substance: AMOXICILLIN
     Indication: Tooth abscess
     Dosage: FREQUENCY : 3 TIMES A DAY;?
     Route: 048
     Dates: start: 20230926, end: 20230930
  2. Zopliclone [Concomitant]
  3. NAPROXEN [Concomitant]
     Active Substance: NAPROXEN
  4. VITAMIN B12 [Concomitant]
     Active Substance: CYANOCOBALAMIN
  5. HERBALS [Concomitant]
     Active Substance: HERBALS
  6. PROBIOTICS NOS [Concomitant]
     Active Substance: PROBIOTICS NOS

REACTIONS (13)
  - Nausea [None]
  - Headache [None]
  - Diarrhoea [None]
  - Rash [None]
  - Oral candidiasis [None]
  - Oropharyngeal pain [None]
  - Tongue disorder [None]
  - Tongue haemorrhage [None]
  - Tongue discomfort [None]
  - Dry mouth [None]
  - Ageusia [None]
  - Pain [None]
  - Dry mouth [None]

NARRATIVE: CASE EVENT DATE: 20230928
